FAERS Safety Report 8989756 (Version 1)
Quarter: 2012Q4

REPORT INFORMATION
  Report Type: 
  Country: CA (occurrence: CA)
  Receive Date: 20121228
  Receipt Date: 20121228
  Transmission Date: 20130627
  Serious: Yes (Other)
  Sender: FDA-Public Use
  Company Number: CA-JNJFOC-20121209622

PATIENT
  Age: 18 Month
  Sex: Male

DRUGS (1)
  1. TOPAMAX [Suspect]
     Indication: EXPOSURE DURING BREAST FEEDING
     Route: 048

REACTIONS (3)
  - Failure to thrive [Unknown]
  - Breast feeding [Unknown]
  - Body height below normal [Unknown]
